FAERS Safety Report 20925242 (Version 1)
Quarter: 2022Q2

REPORT INFORMATION
  Report Type: Spontaneous
  Country: US (occurrence: US)
  Receive Date: 20220607
  Receipt Date: 20220607
  Transmission Date: 20220721
  Serious: No
  Sender: FDA-Public Use
  Company Number: US-PHARMAESSENTIA CORPORATION-US-2022-PEC-000579

PATIENT

DRUGS (2)
  1. BESREMI [Suspect]
     Active Substance: ROPEGINTERFERON ALFA-2B-NJFT
     Indication: Polycythaemia vera
     Dosage: 100 MCG ONCE EVERY 2 WEEKS
     Route: 058
     Dates: start: 20220407
  2. BESREMI [Suspect]
     Active Substance: ROPEGINTERFERON ALFA-2B-NJFT
     Dosage: 100 MCG, MONTHLY
     Route: 058

REACTIONS (11)
  - Blood test abnormal [Recovering/Resolving]
  - Weight decreased [Unknown]
  - Dry mouth [Recovering/Resolving]
  - Abnormal dreams [Recovering/Resolving]
  - Pain in extremity [Recovering/Resolving]
  - Confusional state [Recovering/Resolving]
  - Headache [Recovering/Resolving]
  - Thrombocytopenia [Unknown]
  - Depression [Unknown]
  - Haematocrit decreased [Recovering/Resolving]
  - Off label use [Unknown]

NARRATIVE: CASE EVENT DATE: 20220410
